FAERS Safety Report 4311765-1 (Version None)
Quarter: 2004Q1

REPORT INFORMATION
  Report Type: 
  Country: None (occurrence: None)
  Receive Date: 20040304
  Receipt Date: 20040304
  Transmission Date: 20041129
  Serious: Yes (Disabling)
  Sender: FDA-Public Use
  Company Number: None

PATIENT
  Age: 34 Year
  Sex: Male
  Weight: 127.0072 kg

DRUGS (1)
  1. ZICAM [Suspect]
     Dosage: 1 DAY
     Dates: start: 20031001, end: 20031215

REACTIONS (1)
  - ANOSMIA [None]
